FAERS Safety Report 16766866 (Version 1)
Quarter: 2019Q4

REPORT INFORMATION
  Report Type: Spontaneous
  Country: US (occurrence: US)
  Receive Date: 20190902
  Receipt Date: 20190902
  Transmission Date: 20200122
  Serious: No
  Sender: FDA-Public Use
  Company Number: None

PATIENT
  Age: 67 Year
  Sex: Male
  Weight: 92.25 kg

DRUGS (1)
  1. PICATO [Suspect]
     Active Substance: INGENOL MEBUTATE
     Indication: ACTINIC KERATOSIS
     Dosage: ?          QUANTITY:3 CAPSULE(S);??
     Route: 061
     Dates: start: 20190821, end: 20190823

REACTIONS (6)
  - Scab [None]
  - Skin burning sensation [None]
  - Swelling [None]
  - Erythema [None]
  - Skin exfoliation [None]
  - Blister [None]

NARRATIVE: CASE EVENT DATE: 20190828
